FAERS Safety Report 25214726 (Version 1)
Quarter: 2025Q2

REPORT INFORMATION
  Report Type: Spontaneous
  Country: US (occurrence: None)
  Receive Date: 20250417
  Receipt Date: 20250417
  Transmission Date: 20250717
  Serious: No
  Sender: FDA-CTU
  Company Number: None

PATIENT
  Age: 32 Year
  Sex: Female

DRUGS (3)
  1. MONTELUKAST SODIUM [Suspect]
     Active Substance: MONTELUKAST SODIUM
     Indication: Asthma
  2. OXYCODONE [Suspect]
     Active Substance: OXYCODONE
  3. SERTRALINE [Suspect]
     Active Substance: SERTRALINE HYDROCHLORIDE

REACTIONS (5)
  - Suicidal ideation [None]
  - Suicide attempt [None]
  - Thermal burn [None]
  - Intentional self-injury [None]
  - Overdose [None]

NARRATIVE: CASE EVENT DATE: 20250303
